FAERS Safety Report 7617994-3 (Version None)
Quarter: 2011Q3

REPORT INFORMATION
  Report Type: 
  Country: None (occurrence: None)
  Receive Date: 20110718
  Receipt Date: 20110713
  Transmission Date: 20111222
  Serious: Yes (Death)
  Sender: FDA-Public Use
  Company Number: PHHY2011US62928

PATIENT
  Sex: Female
  Weight: 138.6 kg

DRUGS (2)
  1. RECLAST [Suspect]
     Dosage: UNK UKN, UNK
     Route: 042
  2. SYNTHROID [Concomitant]

REACTIONS (8)
  - VISUAL IMPAIRMENT [None]
  - ISCHAEMIC CARDIOMYOPATHY [None]
  - BLOOD ALKALINE PHOSPHATASE INCREASED [None]
  - CORONARY ARTERY DISEASE [None]
  - CARDIOGENIC SHOCK [None]
  - HAEMOGLOBIN DECREASED [None]
  - MYOCARDIAL INFARCTION [None]
  - WEIGHT DECREASED [None]
